FAERS Safety Report 11518927 (Version 1)
Quarter: 2015Q3

REPORT INFORMATION
  Report Type: Spontaneous
  Country: JP (occurrence: JP)
  Receive Date: 20150917
  Receipt Date: 20150917
  Transmission Date: 20151125
  Serious: Yes (Other)
  Sender: FDA-Public Use
  Company Number: PHHY2015JP110653

PATIENT
  Age: 42 Year
  Sex: Female

DRUGS (4)
  1. AZATHIOPRINE. [Suspect]
     Active Substance: AZATHIOPRINE
     Indication: SIALOADENITIS
  2. PREDNISOLONE. [Suspect]
     Active Substance: PREDNISOLONE
     Indication: DACRYOADENITIS ACQUIRED
     Dosage: 30 MG, QD
     Route: 065
  3. PREDNISOLONE. [Suspect]
     Active Substance: PREDNISOLONE
     Indication: SIALOADENITIS
     Dosage: 3 MG, QD
     Route: 065
  4. AZATHIOPRINE. [Suspect]
     Active Substance: AZATHIOPRINE
     Indication: DACRYOADENITIS ACQUIRED
     Route: 065

REACTIONS (4)
  - Sialoadenitis [Unknown]
  - Diabetes mellitus [Unknown]
  - Disease recurrence [Unknown]
  - Dacryoadenitis acquired [Unknown]

NARRATIVE: CASE EVENT DATE: 2012
